FAERS Safety Report 4553607-5 (Version None)
Quarter: 2004Q4

REPORT INFORMATION
  Report Type: 
  Country: None (occurrence: None)
  Receive Date: 20041227
  Receipt Date: 20041027
  Transmission Date: 20050328
  Serious: No
  Sender: FDA-Public Use
  Company Number: 04P-163-0279264-00

PATIENT
  Age: 57 Year
  Sex: Female
  Weight: 67.1324 kg

DRUGS (4)
  1. HUMIRA [Suspect]
     Indication: RHEUMATOID ARTHRITIS
     Dosage: 40 MG, 1 IN 2 WK, SUBCUTANEOUS
     Route: 058
     Dates: start: 20040701
  2. LEFLUNOMIDE [Concomitant]
  3. METHOTREXATE SODIUM [Concomitant]
  4. NAPROXEN SODIUM [Concomitant]

REACTIONS (3)
  - DRY EYE [None]
  - PRURITUS [None]
  - VISION BLURRED [None]
